FAERS Safety Report 6145536-0 (Version None)
Quarter: 2009Q2

REPORT INFORMATION
  Report Type: 
  Country: None (occurrence: None)
  Receive Date: 20090402
  Receipt Date: 20090320
  Transmission Date: 20091009
  Serious: Yes (Hospitalization)
  Sender: FDA-Public Use
  Company Number: GB-000094

PATIENT
  Age: 30 Year
  Sex: Female

DRUGS (1)
  1. MENOPUR [Suspect]
     Dosage: 225 IU, SUBCUTANEOUS
     Route: 058
     Dates: start: 20090219, end: 20090303

REACTIONS (6)
  - ABDOMINAL PAIN [None]
  - ASCITES [None]
  - DYSPNOEA [None]
  - PREGNANCY [None]
  - ULTRASOUND OVARY ABNORMAL [None]
  - URINE ABNORMALITY [None]
